FAERS Safety Report 9525368 (Version 3)
Quarter: 2013Q3

REPORT INFORMATION
  Report Type: Report from Study
  Country: CA (occurrence: CA)
  Receive Date: 20130916
  Receipt Date: 20130929
  Transmission Date: 20140515
  Serious: Yes (Other)
  Sender: FDA-Public Use
  Company Number: CA-ROCHE-1233065

PATIENT
  Age: 23 Year
  Sex: Female
  Weight: 74 kg

DRUGS (9)
  1. ACTEMRA [Suspect]
     Indication: RHEUMATOID ARTHRITIS
     Route: 042
     Dates: start: 20130311
  2. ACTEMRA [Suspect]
     Route: 042
     Dates: start: 20130729
  3. ACTEMRA [Suspect]
     Route: 042
     Dates: start: 20130828
  4. LOSEC (CANADA) [Concomitant]
  5. XANAX [Concomitant]
  6. ABILIFY [Concomitant]
  7. PREDNISONE [Concomitant]
  8. ZOLOFT [Concomitant]
  9. NAPROXEN [Concomitant]

REACTIONS (8)
  - Haematochezia [Not Recovered/Not Resolved]
  - Crohn^s disease [Not Recovered/Not Resolved]
  - Arthralgia [Unknown]
  - Urticaria [Recovering/Resolving]
  - Rash [Recovered/Resolved]
  - Weight decreased [Unknown]
  - Diarrhoea [Not Recovered/Not Resolved]
  - Abdominal pain [Not Recovered/Not Resolved]
